APPROVED DRUG PRODUCT: BUTABARBITAL SODIUM
Active Ingredient: BUTABARBITAL SODIUM
Strength: 30MG
Dosage Form/Route: TABLET;ORAL
Application: A084272 | Product #002
Applicant: SANDOZ INC
Approved: Approved Prior to Jan 1, 1982 | RLD: No | RS: No | Type: DISCN